FAERS Safety Report 10052563 (Version 2)
Quarter: 2014Q2

REPORT INFORMATION
  Report Type: Spontaneous
  Country: US (occurrence: US)
  Receive Date: 20140402
  Receipt Date: 20140428
  Transmission Date: 20141212
  Serious: No
  Sender: FDA-Public Use
  Company Number: US-009507513-1403USA010817

PATIENT
  Age: 59 Year
  Sex: Male

DRUGS (2)
  1. TICE BCG LIVE [Suspect]
     Indication: BLADDER CANCER
     Dosage: 50 MG, 1 STANDARD DOSE OF 1
     Route: 043
     Dates: start: 20140312, end: 20140312
  2. TICE BCG LIVE [Suspect]
     Dosage: 50 MG, 1 STANDARD DOSE OF 1
     Route: 043
     Dates: start: 20140312, end: 20140312

REACTIONS (1)
  - Muscle spasms [Unknown]
